FAERS Safety Report 19194157 (Version 1)
Quarter: 2021Q2

REPORT INFORMATION
  Report Type: Other
  Country: CA (occurrence: CA)
  Receive Date: 20210429
  Receipt Date: 20210429
  Transmission Date: 20210717
  Serious: Yes (Other)
  Sender: FDA-Public Use
  Company Number: CA-COVIS PHARMA GMBH-2021COV00189

PATIENT
  Age: 63 Year
  Sex: Female
  Weight: 79 kg

DRUGS (19)
  1. DOXYCYCLINE. [Suspect]
     Active Substance: DOXYCYCLINE
     Indication: PRODUCT USED FOR UNKNOWN INDICATION
  2. SALBUTAMOL SULFATE [Suspect]
     Active Substance: ALBUTEROL SULFATE
     Indication: PRODUCT USED FOR UNKNOWN INDICATION
     Dosage: 2 DF
  3. SALBUTAMOL SULFATE [Suspect]
     Active Substance: ALBUTEROL SULFATE
     Dosage: UNK
  4. COENZYME Q10 [Suspect]
     Active Substance: DIETARY SUPPLEMENT\UBIDECARENONE
     Indication: PRODUCT USED FOR UNKNOWN INDICATION
  5. IRON [Suspect]
     Active Substance: IRON
     Indication: PRODUCT USED FOR UNKNOWN INDICATION
  6. OMEGA?3 MARINE TRIGLYCERIDES [Suspect]
     Active Substance: OMEGA-3-ACID ETHYL ESTERS
     Indication: PRODUCT USED FOR UNKNOWN INDICATION
  7. UMECLIDINIUM BROMIDE/VILANTEROL TRIFENATATE [Suspect]
     Active Substance: UMECLIDINIUM BROMIDE\VILANTEROL TRIFENATATE
     Indication: PRODUCT USED FOR UNKNOWN INDICATION
     Dosage: 1 DF, 1X/DAY
  8. VITAMIN B12 [Suspect]
     Active Substance: CYANOCOBALAMIN
     Indication: PRODUCT USED FOR UNKNOWN INDICATION
  9. AZITHROMYCIN ANHYDROUS. [Suspect]
     Active Substance: AZITHROMYCIN ANHYDROUS
     Indication: PRODUCT USED FOR UNKNOWN INDICATION
  10. ALVESCO [Suspect]
     Active Substance: CICLESONIDE
     Dosage: 1 DF, 1X/DAY
  11. FLOVENT [Suspect]
     Active Substance: FLUTICASONE PROPIONATE
     Indication: PRODUCT USED FOR UNKNOWN INDICATION
  12. GLUTATHIONE [Suspect]
     Active Substance: GLUTATHIONE
     Indication: PRODUCT USED FOR UNKNOWN INDICATION
     Dosage: 1 DF, 3X/DAY
  13. SIMVASTATIN. [Suspect]
     Active Substance: SIMVASTATIN
     Indication: PRODUCT USED FOR UNKNOWN INDICATION
     Dosage: 10 MG, 1X/DAY
  14. PANCRELIPASE. [Suspect]
     Active Substance: PANCRELIPASE
     Indication: PRODUCT USED FOR UNKNOWN INDICATION
  15. VITAMIN D [Suspect]
     Active Substance: VITAMIN D NOS
     Indication: PRODUCT USED FOR UNKNOWN INDICATION
     Dosage: 3000 IU, 1X/DAY
  16. ALVESCO [Suspect]
     Active Substance: CICLESONIDE
     Indication: PRODUCT USED FOR UNKNOWN INDICATION
     Dosage: 2 DF, 1X/DAY
  17. ALVESCO [Suspect]
     Active Substance: CICLESONIDE
     Dosage: 2 DF, 1X/DAY
  18. PREVACID [Suspect]
     Active Substance: LANSOPRAZOLE
     Indication: PRODUCT USED FOR UNKNOWN INDICATION
     Dosage: 30 MG, 1X/DAY
  19. PREDNISONE. [Suspect]
     Active Substance: PREDNISONE
     Indication: ASTHMA

REACTIONS (24)
  - Dyspnoea [Unknown]
  - Pulmonary mass [Unknown]
  - Therapeutic product effect incomplete [Unknown]
  - Chest pain [Unknown]
  - Wheezing [Unknown]
  - Dysphonia [Unknown]
  - Eosinophil count increased [Unknown]
  - Loss of personal independence in daily activities [Unknown]
  - Obstructive airways disorder [Unknown]
  - Condition aggravated [Unknown]
  - Lung disorder [Unknown]
  - Lung opacity [Unknown]
  - Sleep disorder due to a general medical condition [Unknown]
  - Stomatitis [Unknown]
  - Throat clearing [Unknown]
  - Asthma [Unknown]
  - Blood count abnormal [Unknown]
  - Eosinophilic pneumonia chronic [Unknown]
  - Pneumonia bacterial [Unknown]
  - Pain [Unknown]
  - Sputum discoloured [Unknown]
  - Malaise [Unknown]
  - Cough [Unknown]
  - Eczema [Unknown]
